FAERS Safety Report 9365895 (Version 1)
Quarter: 2013Q2

REPORT INFORMATION
  Report Type: Spontaneous
  Country: US (occurrence: US)
  Receive Date: 20130625
  Receipt Date: 20130625
  Transmission Date: 20140414
  Serious: Yes (Other)
  Sender: FDA-Public Use
  Company Number: US-TEVA-414094USA

PATIENT
  Sex: 0

DRUGS (1)
  1. TRAZODONE [Suspect]

REACTIONS (2)
  - Choking [Unknown]
  - Wrong technique in drug usage process [Unknown]
